FAERS Safety Report 5419019-7 (Version None)
Quarter: 2007Q3

REPORT INFORMATION
  Report Type: 
  Country: None (occurrence: None)
  Receive Date: 20070817
  Receipt Date: 20070809
  Transmission Date: 20080115
  Serious: Yes (Other)
  Sender: FDA-Public Use
  Company Number: BR-PFIZER INC-2007067026

PATIENT
  Sex: Male

DRUGS (3)
  1. LIPITOR [Suspect]
     Indication: ARTERIAL DISORDER
     Route: 048
  2. LIPITOR [Suspect]
     Indication: BLOOD CHOLESTEROL INCREASED
  3. ATENOLOL [Concomitant]
     Indication: BLOOD PRESSURE

REACTIONS (5)
  - CHROMATURIA [None]
  - MYALGIA [None]
  - OSTEOARTHRITIS [None]
  - PAIN [None]
  - POLLAKIURIA [None]
